FAERS Safety Report 11202727 (Version 1)
Quarter: 2015Q2

REPORT INFORMATION
  Report Type: Spontaneous
  Country: US (occurrence: US)
  Receive Date: 20150619
  Receipt Date: 20150619
  Transmission Date: 20150821
  Serious: No
  Sender: FDA-Public Use
  Company Number: US-009507513-1506USA005281

PATIENT
  Age: 42 Year
  Sex: Female
  Weight: 65.76 kg

DRUGS (3)
  1. TEMAZEPAM. [Concomitant]
     Active Substance: TEMAZEPAM
  2. TOPAMAX [Concomitant]
     Active Substance: TOPIRAMATE
  3. NUVARING [Suspect]
     Active Substance: ETHINYL ESTRADIOL\ETONOGESTREL
     Indication: CONTRACEPTION
     Dosage: DOSE/FREQUENCY: 3 WEEKS IN 1 OUT
     Route: 067
     Dates: start: 2010

REACTIONS (2)
  - Menstruation delayed [Unknown]
  - Inappropriate schedule of drug administration [Unknown]

NARRATIVE: CASE EVENT DATE: 2015
